FAERS Safety Report 8953418 (Version 3)
Quarter: 2012Q4

REPORT INFORMATION
  Report Type: 
  Country: JP (occurrence: JP)
  Receive Date: 20121206
  Receipt Date: 20121226
  Transmission Date: 20130627
  Serious: Yes (Other)
  Sender: FDA-Public Use
  Company Number: JP-JNJFOC-20121200218

PATIENT
  Age: 66 Year
  Sex: Male

DRUGS (4)
  1. DUROTEP MT [Suspect]
     Indication: CANCER PAIN
     Route: 062
     Dates: start: 20110416, end: 20110417
  2. DUROTEP MT [Suspect]
     Indication: CANCER PAIN
     Route: 062
     Dates: start: 20110417, end: 20110420
  3. MORPHINE HYDROCHLORIDE [Suspect]
     Indication: CANCER PAIN
     Route: 048
  4. MORPHINE HYDROCHLORIDE [Suspect]
     Indication: CANCER PAIN
     Route: 048
     Dates: start: 20110420

REACTIONS (2)
  - Delirium [Not Recovered/Not Resolved]
  - Drug ineffective [Unknown]
